FAERS Safety Report 8588758 (Version 5)
Quarter: 2012Q4

REPORT INFORMATION
  Report Type: 
  Country: US (occurrence: US)
  Receive Date: 20120531
  Receipt Date: 20120913
  Transmission Date: 20130627
  Serious: Yes (Hospitalization, Disabling, Other)
  Sender: FDA-Public Use
  Company Number: US-009507513-1205USA04407

PATIENT

DRUGS (8)
  1. FOSAMAX [Suspect]
     Indication: OSTEOPENIA
     Dosage: 10 mg, UNK
     Route: 048
     Dates: start: 20000913, end: 20100210
  2. FOSAMAX [Suspect]
     Dosage: 70 mg, UNK
     Route: 048
     Dates: start: 20010615
  3. FOSAMAX [Suspect]
     Indication: OSTEOPENIA
     Dosage: 70 mg, UNK
     Route: 048
     Dates: start: 20080502, end: 20080814
  4. BONIVA [Suspect]
     Indication: OSTEOPENIA
     Dosage: 150 mg, UNK
     Route: 048
     Dates: start: 20080814, end: 20100315
  5. LUVOX [Concomitant]
     Indication: ANXIETY
     Dosage: 100 mg, qd
     Route: 048
     Dates: start: 1986
  6. PRILOSEC [Concomitant]
     Dosage: UNK
     Dates: start: 2001
  7. AURANOFIN [Concomitant]
     Dosage: UNK
     Dates: end: 20100510
  8. RIDAURA [Concomitant]
     Dosage: 3 mg, bid
     Route: 048

REACTIONS (57)
  - Femur fracture [Recovering/Resolving]
  - Intramedullary rod insertion [Unknown]
  - Stress fracture [Not Recovered/Not Resolved]
  - Osteoporosis [Not Recovered/Not Resolved]
  - Appendicitis perforated [Unknown]
  - Cerebrovascular accident [Unknown]
  - Uterine operation [Unknown]
  - Femur fracture [Not Recovered/Not Resolved]
  - Low turnover osteopathy [Not Recovered/Not Resolved]
  - Hypokalaemia [Unknown]
  - Dehydration [Unknown]
  - Clostridium difficile colitis [Unknown]
  - Tooth abscess [Unknown]
  - None [Unknown]
  - Fall [Unknown]
  - Osteoarthritis [Unknown]
  - Dental prosthesis user [Unknown]
  - Endodontic procedure [Unknown]
  - Denture wearer [Unknown]
  - Dry skin [Unknown]
  - Tooth disorder [Unknown]
  - Pelvic pain [Unknown]
  - Smear cervix abnormal [Unknown]
  - Uterine prolapse [Unknown]
  - Endometrial hypertrophy [Unknown]
  - Diverticulum intestinal [Unknown]
  - Irritable bowel syndrome [Unknown]
  - Osteoarthritis [Unknown]
  - Bursitis [Unknown]
  - Oropharyngeal pain [Recovered/Resolved]
  - Eye pain [Unknown]
  - Sneezing [Unknown]
  - Skin lesion [Unknown]
  - Hypertonic bladder [Unknown]
  - Adrenal adenoma [Unknown]
  - Synovial cyst [Recovering/Resolving]
  - Cataract operation [Unknown]
  - Lens extraction [Unknown]
  - Eustachian tube disorder [Unknown]
  - Urinary tract disorder [Unknown]
  - Osteoarthritis [Unknown]
  - Anaemia [Unknown]
  - Cerebrovascular disorder [Unknown]
  - Vitamin D deficiency [Unknown]
  - Dermatitis contact [Unknown]
  - Arteriosclerosis [Unknown]
  - Tooth malformation [Unknown]
  - Arthropod bite [Unknown]
  - Gastritis [Unknown]
  - Flatulence [Unknown]
  - Headache [Unknown]
  - Constipation [Unknown]
  - Abdominal pain [Unknown]
  - Neck pain [Unknown]
  - Nausea [Unknown]
  - Bone pain [Unknown]
  - Drug ineffective [Unknown]
